FAERS Safety Report 21046957 (Version 2)
Quarter: 2022Q3

REPORT INFORMATION
  Report Type: Spontaneous
  Country: FR (occurrence: FR)
  Receive Date: 20220706
  Receipt Date: 20220811
  Transmission Date: 20221027
  Serious: No
  Sender: FDA-Public Use
  Company Number: FR-EXELIXIS-CABO-22053604

PATIENT
  Sex: Female

DRUGS (2)
  1. CABOMETYX [Suspect]
     Active Substance: CABOZANTINIB S-MALATE
     Indication: Renal cancer
     Dosage: 20 MG
  2. CABOMETYX [Suspect]
     Active Substance: CABOZANTINIB S-MALATE
     Dosage: 20 MG, QOD
     Dates: start: 202207

REACTIONS (4)
  - Arrhythmia [Not Recovered/Not Resolved]
  - Gastrointestinal toxicity [Unknown]
  - Skin toxicity [Unknown]
  - Inappropriate schedule of product administration [Unknown]
